FAERS Safety Report 6810069-2 (Version None)
Quarter: 2010Q2

REPORT INFORMATION
  Report Type: 
  Country: None (occurrence: None)
  Receive Date: 20100630
  Receipt Date: 20100625
  Transmission Date: 20101027
  Serious: Yes (Other)
  Sender: FDA-Public Use
  Company Number: CA-ROCHE-706927

PATIENT
  Sex: Male
  Weight: 70.9 kg

DRUGS (2)
  1. XELODA [Suspect]
     Indication: COLON CANCER
     Route: 048
     Dates: start: 20100309, end: 20100601
  2. IRINOTECAN HCL [Suspect]
     Indication: COLON CANCER
     Route: 042
     Dates: start: 20090601, end: 20100601

REACTIONS (2)
  - HYPERBILIRUBINAEMIA [None]
  - MALIGNANT NEOPLASM PROGRESSION [None]
